FAERS Safety Report 4592615-5 (Version None)
Quarter: 2005Q1

REPORT INFORMATION
  Report Type: 
  Country: None (occurrence: None)
  Receive Date: 20050218
  Receipt Date: 20050204
  Transmission Date: 20050727
  Serious: Yes (Life-Threatening, Hospitalization)
  Sender: FDA-Public Use
  Company Number: 2005-DE-00293ZA

PATIENT
  Age: 17 Day
  Sex: Male

DRUGS (2)
  1. VIRAMUNE [Suspect]
     Indication: HUMAN IMMUNODEFICIENCY VIRUS TRANSMISSION
     Dosage: STRENGTH: 50MG/5M1 PO
     Route: 048
     Dates: start: 20050103
  2. VIRAMUNE [Suspect]
     Indication: PROPHYLAXIS AGAINST HIV INFECTION
     Dosage: STRENGTH: 50MG/5M1 PO
     Route: 048
     Dates: start: 20050103

REACTIONS (3)
  - FEEDING PROBLEM IN NEWBORN [None]
  - NECROTISING COLITIS [None]
  - PREMATURE BABY [None]
